FAERS Safety Report 4758545-0 (Version None)
Quarter: 2005Q3

REPORT INFORMATION
  Report Type: 
  Country: None (occurrence: None)
  Receive Date: 20050826
  Receipt Date: 20050816
  Transmission Date: 20060218
  Serious: Yes (Hospitalization)
  Sender: FDA-Public Use
  Company Number: 2005EU001865

PATIENT
  Age: 37 Year
  Sex: Female

DRUGS (5)
  1. FK506(TACROLIMUS) CAPSULES [Suspect]
     Indication: RENAL TRANSPLANT
     Dosage: 2.00 MG , BID, ORAL
     Route: 048
     Dates: start: 20040930
  2. MYCOPHENOLATE MOFETIL (MYCOPHENOLATE MOFETIL) [Suspect]
     Indication: RENAL TRANSPLANT
     Dosage: 1500.00 MG, ORAL
     Route: 048
     Dates: start: 20040930
  3. DACLIZUMAB (DACLIZUMAB) [Suspect]
     Indication: RENAL TRANSPLANT
     Dosage: 2.00 MG/KG, UID/QD, IV NOS
     Route: 042
     Dates: start: 20040302, end: 20040415
  4. PREDNISONE [Suspect]
     Indication: RENAL TRANSPLANT
     Dosage: 7.50 MG
     Dates: start: 20040826
  5. BISOPROLOL (BISOPROLOL) [Concomitant]

REACTIONS (1)
  - CALCULUS URETERIC [None]
